FAERS Safety Report 9875466 (Version 2)
Quarter: 2014Q1

REPORT INFORMATION
  Report Type: Spontaneous
  Country: US (occurrence: US)
  Receive Date: 20140206
  Receipt Date: 20140206
  Transmission Date: 20141002
  Serious: No
  Sender: FDA-Public Use
  Company Number: US-ACORDA-ACO_36123_2013

PATIENT
  Sex: Male

DRUGS (2)
  1. AMPYRA [Suspect]
     Indication: PRODUCT USED FOR UNKNOWN INDICATION
     Dosage: 10 MG, BID
     Route: 048
     Dates: start: 20110701
  2. TYSABRI [Concomitant]
     Indication: MULTIPLE SCLEROSIS

REACTIONS (4)
  - Peroneal nerve palsy [Unknown]
  - Gait disturbance [Unknown]
  - Memory impairment [None]
  - Drug dose omission [Unknown]
